FAERS Safety Report 8096644-9 (Version None)
Quarter: 2012Q1

REPORT INFORMATION
  Report Type: 
  Country: None (occurrence: None)
  Receive Date: 20120129
  Receipt Date: 20111201
  Transmission Date: 20120608
  Serious: No
  Sender: FDA-Public Use
  Company Number: US-ABBOTT-11P-163-0880073-00

PATIENT
  Sex: Female

DRUGS (4)
  1. HUMIRA [Suspect]
     Indication: CROHN'S DISEASE
     Dates: start: 20110601
  2. TEGRETOL [Concomitant]
     Indication: CONVULSION
     Dosage: BID
  3. ZOLOFT [Concomitant]
     Indication: ANXIETY
     Dosage: 50 MG 2 CAPSULES QD
  4. PANTOPRAZOLE SODIUM [Concomitant]
     Indication: DYSPEPSIA
     Dosage: BID

REACTIONS (6)
  - PAPULE [None]
  - PAIN [None]
  - RASH VESICULAR [None]
  - SCAR [None]
  - PAIN OF SKIN [None]
  - MALAISE [None]
